FAERS Safety Report 5604393-9 (Version None)
Quarter: 2008Q1

REPORT INFORMATION
  Report Type: 
  Country: None (occurrence: None)
  Receive Date: 20080128
  Receipt Date: 20080117
  Transmission Date: 20080703
  Serious: Yes (Disabling)
  Sender: FDA-Public Use
  Company Number: IT-JNJFOC-20071202658

PATIENT
  Age: 33 Year
  Sex: Female

DRUGS (8)
  1. PREZISTA [Suspect]
     Route: 048
  2. PREZISTA [Suspect]
     Indication: HIV INFECTION
     Route: 048
  3. ISENTRESS [Suspect]
     Indication: HIV INFECTION
     Route: 048
  4. TENOFOVIR DISOPROXIL FUMARATE [Suspect]
     Route: 048
  5. TENOFOVIR DISOPROXIL FUMARATE [Suspect]
     Indication: HIV INFECTION
     Route: 048
  6. RITONAVIR [Suspect]
     Indication: HIV INFECTION
     Route: 048
  7. TAREG [Concomitant]
     Route: 065
  8. CARDURA [Concomitant]
     Route: 065

REACTIONS (1)
  - HEPATIC ENZYME INCREASED [None]
